FAERS Safety Report 25331531 (Version 1)
Quarter: 2025Q2

REPORT INFORMATION
  Report Type: Spontaneous
  Country: US (occurrence: None)
  Receive Date: 20250519
  Receipt Date: 20250519
  Transmission Date: 20250716
  Serious: Yes (Death, Hospitalization)
  Sender: FDA-CTU
  Company Number: None

PATIENT
  Age: 47 Year
  Sex: Female
  Weight: 64.7 kg

DRUGS (1)
  1. ENFORTUMAB VEDOTIN [Suspect]
     Active Substance: ENFORTUMAB VEDOTIN
     Indication: Adenocarcinoma of colon
     Route: 042
     Dates: start: 20250402, end: 20250430

REACTIONS (2)
  - Sepsis [None]
  - Cachexia [None]

NARRATIVE: CASE EVENT DATE: 20250512
